FAERS Safety Report 20419396 (Version 1)
Quarter: 2022Q1

REPORT INFORMATION
  Report Type: Other
  Country: CA (occurrence: CA)
  Receive Date: 20220203
  Receipt Date: 20220203
  Transmission Date: 20220423
  Serious: Yes (Other)
  Sender: FDA-Public Use
  Company Number: CA-CELLTRION INC.-2022CA000830

PATIENT

DRUGS (8)
  1. RITUXIMAB [Suspect]
     Active Substance: RITUXIMAB
     Indication: Vasculitis
     Dosage: 1000 MG
     Route: 042
  2. RITUXIMAB [Suspect]
     Active Substance: RITUXIMAB
     Indication: Granulomatosis with polyangiitis
     Dosage: 1000 MG
     Route: 042
  3. AZATHIOPRINE [Concomitant]
     Active Substance: AZATHIOPRINE
  4. BENADRYL [Concomitant]
     Active Substance: DIPHENHYDRAMINE HYDROCHLORIDE
     Indication: Premedication
     Dosage: 50.0 MILLIGRAM
     Route: 048
  5. LYRICA [Concomitant]
     Active Substance: PREGABALIN
  6. METHYLPREDNISOLONE SODIUM SUCCINATE [Concomitant]
     Active Substance: METHYLPREDNISOLONE SODIUM SUCCINATE
     Indication: Premedication
     Dosage: 100 MG
     Route: 048
  7. PREDNISONE [Concomitant]
     Active Substance: PREDNISONE
  8. TYLENOL [Concomitant]
     Active Substance: ACETAMINOPHEN
     Indication: Premedication
     Dosage: 650 MG
     Route: 048

REACTIONS (13)
  - Atelectasis [Not Recovered/Not Resolved]
  - Bone disorder [Not Recovered/Not Resolved]
  - Ear disorder [Not Recovered/Not Resolved]
  - Hemiataxia [Not Recovered/Not Resolved]
  - Ill-defined disorder [Not Recovered/Not Resolved]
  - Mouth haemorrhage [Not Recovered/Not Resolved]
  - Nasal disorder [Not Recovered/Not Resolved]
  - Nasal septum perforation [Not Recovered/Not Resolved]
  - Pharyngeal disorder [Not Recovered/Not Resolved]
  - Scab [Not Recovered/Not Resolved]
  - Asthenia [Not Recovered/Not Resolved]
  - Cough [Not Recovered/Not Resolved]
  - Dyspnoea [Not Recovered/Not Resolved]
